FAERS Safety Report 10634692 (Version 2)
Quarter: 2014Q4

REPORT INFORMATION
  Report Type: Spontaneous
  Country: PT (occurrence: PT)
  Receive Date: 20141205
  Receipt Date: 20141223
  Transmission Date: 20150529
  Serious: Yes (Death, Other)
  Sender: FDA-Public Use
  Company Number: PT-ASTELLAS-2014US018605

PATIENT
  Sex: Male

DRUGS (1)
  1. AMPHOTERICIN B, LIPOSOME [Suspect]
     Active Substance: AMPHOTERICIN B
     Indication: EVIDENCE BASED TREATMENT
     Dosage: UNK, UNKNOWN FREQ.
     Route: 065

REACTIONS (1)
  - Death [Fatal]
